FAERS Safety Report 8304070-X (Version None)
Quarter: 2012Q2

REPORT INFORMATION
  Report Type: 
  Country: None (occurrence: None)
  Receive Date: 20120423
  Receipt Date: 20120412
  Transmission Date: 20120825
  Serious: Yes (Hospitalization)
  Sender: FDA-Public Use
  Company Number: FR-BRISTOL-MYERS SQUIBB COMPANY-16533929

PATIENT
  Age: 66 Year
  Sex: Female

DRUGS (9)
  1. DEXAMETHASONE SODIUM PHOSPHATE [Suspect]
     Indication: LARYNGEAL CANCER
     Dosage: DEXAMETHASONE SODIUM PHOSPHATE QUALIMED SOLUN FOR INJ
     Route: 042
     Dates: start: 20120306, end: 20120306
  2. ALUMINUM HYDROXIDE AND MAGNESIUM TRISILICATE [Concomitant]
  3. IMOVANE [Concomitant]
  4. POLARAMINE [Suspect]
     Indication: PREMEDICATION
     Dosage: POLARAMINE SOLN FOR INJ
     Route: 042
     Dates: start: 20120306, end: 20120306
  5. ZANTAC [Suspect]
     Indication: PREMEDICATION
     Dosage: AZANTAC SOLN FOR INF
     Route: 042
     Dates: start: 20120306, end: 20120306
  6. ALDACTONE [Concomitant]
  7. LASIX [Concomitant]
  8. PROPRANOLOL [Concomitant]
  9. ERBITUX [Suspect]
     Indication: LARYNGEAL CANCER
     Route: 042
     Dates: start: 20120306, end: 20120306

REACTIONS (3)
  - MELAENA [None]
  - ANAEMIA [None]
  - GASTRODUODENAL ULCER [None]
